FAERS Safety Report 4433108-5 (Version None)
Quarter: 2004Q3

REPORT INFORMATION
  Report Type: 
  Country: None (occurrence: None)
  Receive Date: 20040823
  Receipt Date: 20040810
  Transmission Date: 20050211
  Serious: Yes (Other)
  Sender: FDA-Public Use
  Company Number: 200407369

PATIENT
  Age: 54 Year
  Sex: Female

DRUGS (1)
  1. RESTASIS [Suspect]
     Indication: KERATOCONJUNCTIVITIS SICCA
     Dosage: 2 DROP QD EYE

REACTIONS (8)
  - DYSPHONIA [None]
  - DYSPNOEA [None]
  - ERYTHEMA [None]
  - EYE IRRITATION [None]
  - EYE REDNESS [None]
  - LACRIMATION INCREASED [None]
  - SWELLING FACE [None]
  - VISION BLURRED [None]
